FAERS Safety Report 22197721 (Version 1)
Quarter: 2023Q2

REPORT INFORMATION
  Report Type: Report from Study
  Country: US (occurrence: US)
  Receive Date: 20230411
  Receipt Date: 20230411
  Transmission Date: 20230722
  Serious: Yes (Other)
  Sender: FDA-Public Use
  Company Number: US-ABBVIE-4721419

PATIENT
  Sex: Male

DRUGS (5)
  1. SKYRIZI [Suspect]
     Active Substance: RISANKIZUMAB-RZAA
     Indication: Psoriasis
     Dosage: FORM STRENGTH: 150 MILLIGRAM
     Route: 058
     Dates: start: 2022
  2. METAMUCIL [Concomitant]
     Active Substance: PLANTAGO SEED
     Indication: Vitamin supplementation
     Route: 065
  3. LUTEIN [Concomitant]
     Active Substance: LUTEIN
     Indication: Vitamin supplementation
     Route: 065
  4. CHROMIUM PICOLINATE [Concomitant]
     Active Substance: CHROMIUM PICOLINATE
     Indication: Vitamin supplementation
     Route: 065
  5. ATORVASTATIN [Concomitant]
     Active Substance: ATORVASTATIN
     Indication: Blood cholesterol increased
     Dosage: FORM STRENGTH: 20 MILLIGRAM
     Route: 065

REACTIONS (2)
  - Dermal cyst [Recovered/Resolved]
  - Mass [Recovered/Resolved]

NARRATIVE: CASE EVENT DATE: 20230101
